FAERS Safety Report 11281586 (Version 1)
Quarter: 2015Q3

REPORT INFORMATION
  Report Type: Spontaneous
  Country: BR (occurrence: BR)
  Receive Date: 20150717
  Receipt Date: 20150717
  Transmission Date: 20151125
  Serious: Yes (Other)
  Sender: FDA-Public Use
  Company Number: BR-ABBVIE-15P-020-1428959-00

PATIENT
  Age: 5 Year
  Sex: Male
  Weight: 24 kg

DRUGS (4)
  1. DEPAKENE [Suspect]
     Active Substance: VALPROIC ACID
     Indication: EPILEPSY
     Dosage: DAILY DOSE: 11ML; 3.5ML TWICE IN THE MORNING AND 4ML ONCE AT NIGHT
     Route: 048
     Dates: start: 201504
  2. SONEBON [Concomitant]
     Indication: EPILEPSY
     Route: 048
     Dates: start: 201504
  3. DEPAKENE [Suspect]
     Active Substance: VALPROIC ACID
     Route: 048
  4. TEGRETOL [Concomitant]
     Active Substance: CARBAMAZEPINE
     Indication: EPILEPSY
     Route: 048
     Dates: start: 201502

REACTIONS (3)
  - Seizure [Recovered/Resolved]
  - Seizure [Recovered/Resolved]
  - Off label use [Unknown]

NARRATIVE: CASE EVENT DATE: 20150704
